FAERS Safety Report 11045280 (Version 5)
Quarter: 2016Q3

REPORT INFORMATION
  Report Type: Spontaneous
  Country: US (occurrence: US)
  Receive Date: 20150417
  Receipt Date: 20160721
  Transmission Date: 20161109
  Serious: Yes (Hospitalization, Disabling, Other)
  Sender: FDA-Public Use
  Company Number: US-009507513-1504USA017101

PATIENT
  Sex: Male

DRUGS (1)
  1. PROPECIA [Suspect]
     Active Substance: FINASTERIDE
     Indication: ALOPECIA
     Dosage: 1 MG, QD
     Route: 048
     Dates: start: 20040614, end: 20110908

REACTIONS (40)
  - Depression [Not Recovered/Not Resolved]
  - Hypogonadism [Not Recovered/Not Resolved]
  - Sexual dysfunction [Not Recovered/Not Resolved]
  - Liposuction [Unknown]
  - Knee operation [Unknown]
  - Intervertebral disc degeneration [Unknown]
  - Sinusitis [Unknown]
  - Pyrexia [Unknown]
  - Headache [Unknown]
  - Back disorder [Not Recovered/Not Resolved]
  - Anxiety [Not Recovered/Not Resolved]
  - Muscle spasms [Unknown]
  - Dizziness [Unknown]
  - Post laminectomy syndrome [Unknown]
  - Sciatica [Unknown]
  - Bursitis [Unknown]
  - Temporomandibular joint syndrome [Unknown]
  - Sleep disorder [Unknown]
  - Adrenal disorder [Unknown]
  - Myalgia [Unknown]
  - Meniscus injury [Unknown]
  - Tremor [Unknown]
  - Atrial fibrillation [Not Recovered/Not Resolved]
  - Arthroscopy [Unknown]
  - Umbilical hernia [Unknown]
  - Mitral valve prolapse [Unknown]
  - Intervertebral disc protrusion [Unknown]
  - Pituitary tumour benign [Unknown]
  - Gastrooesophageal reflux disease [Not Recovered/Not Resolved]
  - Tendonitis [Unknown]
  - Chills [Unknown]
  - Emotional distress [Not Recovered/Not Resolved]
  - Erectile dysfunction [Not Recovered/Not Resolved]
  - Anaemia [Unknown]
  - Myositis [Unknown]
  - Blood cholesterol increased [Unknown]
  - Libido decreased [Not Recovered/Not Resolved]
  - Arthroscopy [Unknown]
  - Osteoarthritis [Unknown]
  - Cervical radiculopathy [Unknown]

NARRATIVE: CASE EVENT DATE: 2004
